FAERS Safety Report 21834238 (Version 1)
Quarter: 2023Q1

REPORT INFORMATION
  Report Type: Spontaneous
  Country: US (occurrence: None)
  Receive Date: 20230108
  Receipt Date: 20230108
  Transmission Date: 20230417
  Serious: No
  Sender: FDA-Public Use
  Company Number: US-ROCHE-3143138

PATIENT
  Age: 18 Year
  Sex: Male
  Weight: 121.7 kg

DRUGS (1)
  1. HEMLIBRA [Suspect]
     Active Substance: EMICIZUMAB-KXWH
     Indication: Haemophilia
     Dosage: 390MG (2.6 ML) EVERY 2 WEEK AS MAINTENANCE DOSE, 3 MG/KG
     Route: 058
     Dates: start: 20200511

REACTIONS (2)
  - Haemorrhage [Recovered/Resolved]
  - Ligament sprain [Recovering/Resolving]

NARRATIVE: CASE EVENT DATE: 20220616
